FAERS Safety Report 11058604 (Version 1)
Quarter: 2015Q2

REPORT INFORMATION
  Report Type: Spontaneous
  Country: KR (occurrence: None)
  Receive Date: 20150421
  Receipt Date: 20150421
  Transmission Date: 20150821
  Serious: Yes (Life-Threatening, Other)
  Sender: FDA-Public Use
  Company Number: FK201501793

PATIENT
  Age: 75 Year
  Sex: Female

DRUGS (3)
  1. COLISTIMETHATE [Suspect]
     Active Substance: COLISTIMETHATE SODIUM
     Indication: PNEUMONIA BACTERIAL
     Dosage: 75 MG, INHALATION BY NEBULIZER
     Route: 055
  2. VANCOMYCIN (MANUFACTURER UNKNOWN) (VANCOMYCIN) (VANCOMYCIN) [Suspect]
     Active Substance: VANCOMYCIN
     Indication: PRODUCT USED FOR UNKNOWN INDICATION
     Dosage: INTRAVENOUS (NOT OTHERWISE SPECIFIED)
     Route: 042
  3. PRIMAXIN IV [Suspect]
     Active Substance: CILASTATIN SODIUM\IMIPENEM
     Indication: PRODUCT USED FOR UNKNOWN INDICATION
     Dosage: WITHIN 72 HOURS OF COLISTIN

REACTIONS (4)
  - Product use issue [None]
  - Pathogen resistance [None]
  - Acute kidney injury [None]
  - Blood albumin decreased [None]
